FAERS Safety Report 20746236 (Version 1)
Quarter: 2022Q2

REPORT INFORMATION
  Report Type: Spontaneous
  Country: US (occurrence: US)
  Receive Date: 20220425
  Receipt Date: 20220425
  Transmission Date: 20220721
  Serious: No
  Sender: FDA-Public Use
  Company Number: US-PFIZER INC-2021711801

PATIENT
  Sex: Female

DRUGS (1)
  1. EFFEXOR XR [Suspect]
     Active Substance: VENLAFAXINE HYDROCHLORIDE
     Dosage: 37.5 MG, AS NEEDED (FOR 3 DAYS)

REACTIONS (8)
  - Product dose omission issue [Unknown]
  - Nausea [Unknown]
  - Abnormal dreams [Unknown]
  - Vomiting [Unknown]
  - Emotional disorder [Unknown]
  - Hyperhidrosis [Unknown]
  - Rapid eye movements sleep abnormal [Unknown]
  - Somnolence [Unknown]
